FAERS Safety Report 12255642 (Version 1)
Quarter: 2016Q2

REPORT INFORMATION
  Report Type: Spontaneous
  Country: US (occurrence: None)
  Receive Date: 20160411
  Receipt Date: 20160411
  Transmission Date: 20160815
  Serious: Yes (Disabling, Other)
  Sender: FDA-Public Use
  Company Number: None

PATIENT
  Age: 58 Year
  Sex: Female
  Weight: 90.72 kg

DRUGS (9)
  1. LYRICA [Suspect]
     Active Substance: PREGABALIN
     Indication: FIBROMYALGIA
     Route: 048
     Dates: start: 20160406, end: 20160406
  2. SYNTHETIC THYROID HORMONE [Concomitant]
  3. ZOFRAN [Concomitant]
     Active Substance: ONDANSETRON HYDROCHLORIDE
  4. LOSINOPRIL [Concomitant]
  5. VICTOZA [Concomitant]
     Active Substance: LIRAGLUTIDE
  6. NEXIUM [Concomitant]
     Active Substance: ESOMEPRAZOLE MAGNESIUM
  7. PAIN MEDS [Concomitant]
     Active Substance: UNSPECIFIED INGREDIENT
  8. METFORMIN [Concomitant]
     Active Substance: METFORMIN HYDROCHLORIDE
  9. CENTRUM CHEWY VITAMINS [Concomitant]

REACTIONS (6)
  - Hypersomnia [None]
  - Pain [None]
  - Nerve injury [None]
  - Muscle twitching [None]
  - Immobile [None]
  - Hypoaesthesia [None]

NARRATIVE: CASE EVENT DATE: 20160406
